FAERS Safety Report 9484759 (Version 1)
Quarter: 2013Q3

REPORT INFORMATION
  Report Type: Spontaneous
  Country: US (occurrence: US)
  Receive Date: 20130828
  Receipt Date: 20130828
  Transmission Date: 20140515
  Serious: Yes (Other)
  Sender: FDA-Public Use
  Company Number: US-GLAXOSMITHKLINE-A1038950A

PATIENT
  Age: 81 Year
  Sex: Female

DRUGS (10)
  1. ADVAIR [Suspect]
     Indication: PRODUCT USED FOR UNKNOWN INDICATION
     Dosage: 1PUFF TWICE PER DAY
     Route: 055
     Dates: start: 201204, end: 20130822
  2. LIPITOR [Concomitant]
  3. NEXIUM [Concomitant]
  4. COZAAR [Concomitant]
  5. SYNTHROID [Concomitant]
  6. CALCIUM [Concomitant]
  7. CENTRUM MULTIVITAMIN [Concomitant]
  8. LEVOFLOXACIN [Concomitant]
  9. METHYLPREDNISOLONE [Concomitant]
  10. FLUTICASONE NASAL SPRAY [Concomitant]

REACTIONS (7)
  - Laryngitis fungal [Not Recovered/Not Resolved]
  - Oral candidiasis [Not Recovered/Not Resolved]
  - Dysphonia [Not Recovered/Not Resolved]
  - Laryngitis [Not Recovered/Not Resolved]
  - Oropharyngeal pain [Not Recovered/Not Resolved]
  - Sneezing [Not Recovered/Not Resolved]
  - Incorrect product storage [Unknown]
